FAERS Safety Report 9570296 (Version 1)
Quarter: 2013Q3

REPORT INFORMATION
  Report Type: Spontaneous
  Country: US (occurrence: US)
  Receive Date: 20130930
  Receipt Date: 20130930
  Transmission Date: 20140515
  Serious: No
  Sender: FDA-Public Use
  Company Number: US-AMGEN-USASP2013064538

PATIENT
  Age: 53 Year
  Sex: Female

DRUGS (3)
  1. ENBREL [Suspect]
     Indication: RHEUMATOID ARTHRITIS
     Dosage: 50 MG, QWK
     Route: 065
     Dates: start: 20090520
  2. FLUNISOLIDE [Suspect]
     Indication: NASAL CONGESTION
     Dosage: UNK
     Route: 065
  3. METHOTREXATE                       /00113802/ [Concomitant]
     Dosage: 15 MG, QWK

REACTIONS (2)
  - Nasal discomfort [Recovered/Resolved]
  - Nasal congestion [Not Recovered/Not Resolved]
